FAERS Safety Report 8827157 (Version 1)
Quarter: 2012Q4

REPORT INFORMATION
  Report Type: 
  Country: US (occurrence: US)
  Receive Date: 20121008
  Receipt Date: 20121008
  Transmission Date: 20130627
  Serious: No
  Sender: FDA-Public Use
  Company Number: US-BIOGENIDEC-2012BI043056

PATIENT
  Sex: Female
  Weight: 64 kg

DRUGS (14)
  1. TYSABRI [Suspect]
     Indication: MULTIPLE SCLEROSIS
     Route: 042
  2. UNKNOWN MEDICATION [Concomitant]
     Indication: HYPERTENSION
  3. NEURONTIN [Concomitant]
     Route: 048
  4. TRILEPTAL [Concomitant]
     Indication: MUSCLE SPASTICITY
     Route: 048
  5. ZANAFLEX [Concomitant]
     Indication: MUSCLE TIGHTNESS
     Route: 048
  6. ESTRADIOL [Concomitant]
     Indication: MENOPAUSE
     Route: 048
  7. FLUOXETINE [Concomitant]
     Indication: MULTIPLE SCLEROSIS
     Route: 048
  8. TOPAMAX [Concomitant]
     Indication: MULTIPLE SCLEROSIS
     Route: 048
  9. SANCTURA [Concomitant]
     Indication: URINARY INCONTINENCE
     Route: 048
  10. BUMEX [Concomitant]
     Indication: POLYURIA
     Route: 048
  11. BUMEX [Concomitant]
     Indication: HYPERTENSION
     Route: 048
  12. PROVIGIL [Concomitant]
     Indication: FATIGUE
     Route: 048
  13. NORCO [Concomitant]
     Route: 048
  14. VITAMIN B12 [Concomitant]

REACTIONS (3)
  - Insomnia [Not Recovered/Not Resolved]
  - Herpes zoster [Recovered/Resolved]
  - Hypotension [Recovered/Resolved]
